FAERS Safety Report 4448543-9 (Version None)
Quarter: 2004Q3

REPORT INFORMATION
  Report Type: 
  Country: None (occurrence: None)
  Receive Date: 20040909
  Receipt Date: 20040819
  Transmission Date: 20050211
  Serious: Yes (Hospitalization)
  Sender: FDA-Public Use
  Company Number: FR_040804634

PATIENT
  Age: 49 Year
  Sex: Male

DRUGS (3)
  1. PROZAC [Suspect]
     Indication: BIPOLAR I DISORDER
     Dosage: 20 MG/2 DAY
     Dates: start: 20040706, end: 20040708
  2. TEGRETOL [Concomitant]
  3. NOZINAN (LEVOMEPROMAZINE HYDROCHLORIDE) [Concomitant]

REACTIONS (1)
  - ANGIONEUROTIC OEDEMA [None]
